FAERS Safety Report 5429389-1 (Version None)
Quarter: 2007Q3

REPORT INFORMATION
  Report Type: 
  Country: None (occurrence: None)
  Receive Date: 20070829
  Receipt Date: 20070828
  Transmission Date: 20080115
  Serious: Yes (Other)
  Sender: FDA-Public Use
  Company Number: A0664710A

PATIENT
  Age: 53 Year
  Sex: Female
  Weight: 79.1 kg

DRUGS (3)
  1. ALLI [Suspect]
     Indication: WEIGHT LOSS DIET
     Route: 048
     Dates: start: 20070618
  2. MELOXICAM [Suspect]
     Route: 065
     Dates: end: 20070101
  3. HYZAAR [Concomitant]

REACTIONS (5)
  - COAGULOPATHY [None]
  - DRUG INTERACTION [None]
  - EPISTAXIS [None]
  - JOINT EFFUSION [None]
  - MEAN PLATELET VOLUME INCREASED [None]
